FAERS Safety Report 5401104-7 (Version None)
Quarter: 2007Q3

REPORT INFORMATION
  Report Type: 
  Country: None (occurrence: None)
  Receive Date: 20070731
  Receipt Date: 20070726
  Transmission Date: 20080115
  Serious: Yes (Other)
  Sender: FDA-Public Use
  Company Number: PHEH2007US07520

PATIENT
  Age: 7 Year
  Sex: Male
  Weight: 18.9 kg

DRUGS (4)
  1. EXJADE [Suspect]
     Indication: IRON OVERLOAD
     Dosage: 500 MG, QD
     Route: 048
     Dates: start: 20061229, end: 20070113
  2. EXJADE [Suspect]
     Dosage: 250 MG, QD
     Route: 048
     Dates: start: 20070307, end: 20070401
  3. HYDROXYUREA [Suspect]
     Indication: CHEST PAIN
     Dosage: 500 MG, 4 TIMES/WEEK
     Route: 048
     Dates: start: 20050801
  4. PENICILLIN V POTASSIUM [Concomitant]
     Indication: SPLENECTOMY
     Dosage: 250 MG, BID
     Route: 048

REACTIONS (3)
  - ALANINE AMINOTRANSFERASE INCREASED [None]
  - ASPARTATE AMINOTRANSFERASE INCREASED [None]
  - DRUG INTERACTION [None]
